FAERS Safety Report 8110351-5 (Version None)
Quarter: 2012Q1

REPORT INFORMATION
  Report Type: 
  Country: None (occurrence: None)
  Receive Date: 20120202
  Receipt Date: 20120131
  Transmission Date: 20120608
  Serious: Yes (Hospitalization)
  Sender: FDA-Public Use
  Company Number: FR-ROCHE-1035393

PATIENT
  Sex: Female

DRUGS (11)
  1. ACTONEL [Concomitant]
     Dosage: 1/PERSON
  2. INNOHEP [Concomitant]
     Route: 058
  3. PREDNISOLONE [Concomitant]
     Route: 048
  4. POTASSIUM CHLORIDE [Concomitant]
     Dosage: 2/D
     Route: 048
  5. LEVOTHYROXINE SODIUM [Concomitant]
     Route: 048
  6. COZAAR [Concomitant]
  7. AVASTIN [Suspect]
     Indication: GLIOBLASTOMA
     Dates: start: 20110727
  8. TEMOZOLOMIDE [Suspect]
     Indication: GLIOBLASTOMA
     Dates: start: 20110727
  9. AMLODIPINE BESYLATE [Concomitant]
  10. ESIDRIX [Concomitant]
  11. TENORMIN [Concomitant]

REACTIONS (1)
  - PYELONEPHRITIS [None]
